FAERS Safety Report 6533275-3 (Version None)
Quarter: 2010Q1

REPORT INFORMATION
  Report Type: 
  Country: None (occurrence: None)
  Receive Date: 20100111
  Receipt Date: 20100104
  Transmission Date: 20100710
  Serious: Yes (Hospitalization)
  Sender: FDA-Public Use
  Company Number: GXKR2009PL13199

PATIENT
  Age: 35 Year
  Sex: Female

DRUGS (4)
  1. ZOLPIDEM (NGX) [Suspect]
     Indication: INSOMNIA
     Dosage: WHEN REQUIRED, INCREASING DOSES
     Route: 048
  2. ZOLPIDEM (NGX) [Suspect]
     Dosage: 10 DF, Q3H
     Route: 048
  3. ZOLPIDEM (NGX) [Suspect]
     Dosage: MAXIMUM DAILY DOSE: 1000 MG
     Route: 048
  4. PSYCHOSTIMULANTS AND NOOTROPICS [Concomitant]
     Route: 065

REACTIONS (8)
  - ABDOMINAL PAIN [None]
  - ANXIETY [None]
  - CONVULSION [None]
  - DRUG DEPENDENCE [None]
  - DRUG WITHDRAWAL SYNDROME [None]
  - HEADACHE [None]
  - INTENTIONAL DRUG MISUSE [None]
  - TREMOR [None]
